FAERS Safety Report 23163354 (Version 1)
Quarter: 2023Q4

REPORT INFORMATION
  Report Type: Spontaneous
  Country: NL (occurrence: NL)
  Receive Date: 20231109
  Receipt Date: 20231109
  Transmission Date: 20240110
  Serious: No
  Sender: FDA-Public Use
  Company Number: NL-ALKEM LABORATORIES LIMITED-NL-ALKEM-2022-11992

PATIENT
  Age: 25 Year
  Sex: Male

DRUGS (2)
  1. METHYLPHENIDATE HYDROCHLORIDE [Suspect]
     Active Substance: METHYLPHENIDATE HYDROCHLORIDE
     Indication: Product used for unknown indication
     Dosage: UNK LONG-ACTING VARIANT OF METHYLPHENIDATE (CONCERTA?)
     Route: 065
  2. METHYLPHENIDATE HYDROCHLORIDE [Suspect]
     Active Substance: METHYLPHENIDATE HYDROCHLORIDE
     Dosage: UNK SHORTER-ACTING VARIANT OF METHYLPHENIDATE (RITALIN?)
     Route: 065

REACTIONS (1)
  - Spontaneous ejaculation [Not Recovered/Not Resolved]
